FAERS Safety Report 18487884 (Version 3)
Quarter: 2020Q4

REPORT INFORMATION
  Report Type: Spontaneous
  Country: JP (occurrence: JP)
  Receive Date: 20201110
  Receipt Date: 20201127
  Transmission Date: 20210114
  Serious: Yes (Death, Life-Threatening, Other)
  Sender: FDA-Public Use
  Company Number: JP-JAZZ-2020-JP-014622

PATIENT
  Age: 60 Year
  Sex: Male
  Weight: 61.2 kg

DRUGS (1)
  1. DEFITELIO [Suspect]
     Active Substance: DEFIBROTIDE SODIUM
     Indication: VENOOCCLUSIVE LIVER DISEASE
     Dosage: 25 MILLIGRAM/KILOGRAM DAILY
     Route: 042
     Dates: start: 20201023, end: 20201024

REACTIONS (5)
  - Off label use [Unknown]
  - Septic shock [Fatal]
  - Delayed engraftment [Fatal]
  - Mouth haemorrhage [Recovering/Resolving]
  - Hypotension [Fatal]

NARRATIVE: CASE EVENT DATE: 2020
